FAERS Safety Report 4973834-2 (Version None)
Quarter: 2006Q2

REPORT INFORMATION
  Report Type: 
  Country: None (occurrence: None)
  Receive Date: 20060414
  Receipt Date: 20050209
  Transmission Date: 20061013
  Serious: Yes (Hospitalization)
  Sender: FDA-Public Use
  Company Number: US-MERCK-0502USA01143

PATIENT
  Age: 73 Year
  Sex: Male
  Weight: 71 kg

DRUGS (4)
  1. VIOXX [Suspect]
     Indication: ARTHRALGIA
     Route: 048
     Dates: start: 19991001, end: 20030101
  2. VIOXX [Suspect]
     Route: 048
     Dates: start: 20031021
  3. VIOXX [Suspect]
     Indication: OSTEOARTHRITIS
     Route: 048
     Dates: start: 19991001, end: 20030101
  4. VIOXX [Suspect]
     Route: 048
     Dates: start: 20031021

REACTIONS (4)
  - ANGINA UNSTABLE [None]
  - DYSPEPSIA [None]
  - MYOCARDIAL INFARCTION [None]
  - SHOULDER ARTHROPLASTY [None]
